FAERS Safety Report 25110992 (Version 1)
Quarter: 2025Q1

REPORT INFORMATION
  Report Type: Spontaneous
  Country: PL (occurrence: PL)
  Receive Date: 20250324
  Receipt Date: 20250324
  Transmission Date: 20250409
  Serious: Yes (Life-Threatening, Hospitalization, Other)
  Sender: SANOFI AVENTIS
  Company Number: None

PATIENT
  Age: 74 Year
  Sex: Male
  Weight: 96 kg

DRUGS (14)
  1. ENOXAPARIN SODIUM [Suspect]
     Active Substance: ENOXAPARIN SODIUM
     Indication: Product used for unknown indication
     Dosage: 60 MG, QD
     Route: 058
  2. HYGROTON [Suspect]
     Active Substance: CHLORTHALIDONE
     Dosage: 25 MG, QD
     Route: 048
     Dates: start: 20230630, end: 20230719
  3. NEBIVOLOL HYDROCHLORIDE [Suspect]
     Active Substance: NEBIVOLOL HYDROCHLORIDE
     Dosage: 2.5 MG, QD
     Dates: end: 20230719
  4. VALSARTAN [Suspect]
     Active Substance: VALSARTAN
     Dates: end: 20230719
  5. EPLERENONE [Suspect]
     Active Substance: EPLERENONE
     Dosage: 50 MG, QD
     Route: 048
     Dates: end: 20230719
  6. TORSEMIDE [Suspect]
     Active Substance: TORSEMIDE
     Dates: end: 20230719
  7. JARDIANCE [Suspect]
     Active Substance: EMPAGLIFLOZIN
     Dosage: 10 MG, QD
     Route: 048
     Dates: start: 20230630, end: 20230719
  8. METFORMIN HYDROCHLORIDE [Suspect]
     Active Substance: METFORMIN HYDROCHLORIDE
     Dosage: 850 MG, TID (1-1-1)
     Route: 048
     Dates: end: 20230719
  9. ATORVASTATIN [Concomitant]
     Active Substance: ATORVASTATIN
     Dosage: 20 MG, QD
     Route: 048
  10. ALLOPURINOL [Concomitant]
     Active Substance: ALLOPURINOL
     Dosage: 100 MG, QD
     Route: 048
     Dates: start: 20230630, end: 20230719
  11. GLICLAZIDE [Concomitant]
     Active Substance: GLICLAZIDE
     Dosage: 30 MG, QD
     Route: 048
     Dates: end: 20230719
  12. INSULIN LISPRO [Concomitant]
     Active Substance: INSULIN LISPRO
  13. HUMALOG [Concomitant]
     Active Substance: INSULIN LISPRO
  14. AMLODIPINE BESYLATE [Concomitant]
     Active Substance: AMLODIPINE BESYLATE
     Dosage: THERAPY ONGOING
     Route: 048

REACTIONS (1)
  - Acute kidney injury [Recovering/Resolving]
